FAERS Safety Report 19463656 (Version 1)
Quarter: 2021Q2

REPORT INFORMATION
  Report Type: Spontaneous
  Country: US (occurrence: US)
  Receive Date: 20210625
  Receipt Date: 20210625
  Transmission Date: 20210717
  Serious: No
  Sender: FDA-Public Use
  Company Number: US-SEBELA IRELAND LIMITED-2020SEB00105

PATIENT
  Age: 89 Year
  Sex: Male
  Weight: 90.7 kg

DRUGS (20)
  1. CLOPIDOGREL [Concomitant]
     Active Substance: CLOPIDOGREL BISULFATE
  2. PRAMOSONE [Suspect]
     Active Substance: HYDROCORTISONE ACETATE\PRAMOXINE HYDROCHLORIDE
     Indication: RASH PRURITIC
     Dosage: A THIN COATING APPLIED TO AFFECTED AREA SPARINGLY, ONCE OR TWICE DAILY
     Route: 061
  3. OFLOXACIN. [Concomitant]
     Active Substance: OFLOXACIN
  4. SENOKOT [Concomitant]
     Active Substance: SENNOSIDES
  5. DORZOLAMIDE?TIMOLOL [Concomitant]
     Active Substance: DORZOLAMIDE\TIMOLOL
  6. ECOTRIN [Concomitant]
     Active Substance: ASPIRIN
  7. BIMATOPROST. [Concomitant]
     Active Substance: BIMATOPROST
  8. DOCUSATE SODIUM. [Concomitant]
     Active Substance: DOCUSATE SODIUM
  9. CARVEDILOL. [Concomitant]
     Active Substance: CARVEDILOL
  10. FLONASE [Concomitant]
     Active Substance: FLUTICASONE PROPIONATE
  11. VITAMIN D3 [Concomitant]
     Active Substance: CHOLECALCIFEROL
  12. PRAMOSONE [Suspect]
     Active Substance: HYDROCORTISONE ACETATE\PRAMOXINE HYDROCHLORIDE
     Indication: TINEA CRURIS
     Dosage: A THIN COATING APPLIED TO AFFECTED AREA SPARINGLY FOR ^AWHILE^
     Route: 061
     Dates: start: 201811
  13. UNSPECIFIED MEDICATIONS [Concomitant]
     Active Substance: UNSPECIFIED INGREDIENT
  14. ALLOPURINOL. [Concomitant]
     Active Substance: ALLOPURINOL
  15. GLUCOSAMINE/CHONDROITIN [Concomitant]
  16. LASIX [Concomitant]
     Active Substance: FUROSEMIDE
  17. PRAMOSONE [Suspect]
     Active Substance: HYDROCORTISONE ACETATE\PRAMOXINE HYDROCHLORIDE
     Indication: RASH
     Dosage: A THIN COATING APPLIED TO AFFECTED AREA SPARINGLY DAILY
     Route: 061
  18. PRAMOSONE [Suspect]
     Active Substance: HYDROCORTISONE ACETATE\PRAMOXINE HYDROCHLORIDE
     Dosage: A THIN COATING APPLIED TO AFFECTED AREA SPARINGLY, ONCE OR TWICE DAILY
     Route: 061
     Dates: start: 202008
  19. LISINOPRIL. [Concomitant]
     Active Substance: LISINOPRIL
  20. SILVER SILVADENE [Concomitant]

REACTIONS (7)
  - Rash [Recovering/Resolving]
  - Insomnia [Recovering/Resolving]
  - Drug ineffective for unapproved indication [Recovered/Resolved]
  - Rash erythematous [Recovering/Resolving]
  - Rash pruritic [Recovering/Resolving]
  - Burning sensation [Recovering/Resolving]
  - Product dose omission issue [Recovered/Resolved]

NARRATIVE: CASE EVENT DATE: 201811
